FAERS Safety Report 5246709-1 (Version None)
Quarter: 2007Q1

REPORT INFORMATION
  Report Type: 
  Country: None (occurrence: None)
  Receive Date: 20070226
  Receipt Date: 20070215
  Transmission Date: 20070707
  Serious: Yes (Death, Hospitalization)
  Sender: FDA-Public Use
  Company Number: US-AMGEN-US204219

PATIENT
  Sex: Female

DRUGS (5)
  1. PANITUMUMAB [Suspect]
     Indication: COLORECTAL CANCER
     Route: 042
     Dates: start: 20060926, end: 20061205
  2. IRINOTECAN [Concomitant]
     Route: 042
  3. FOLINIC ACID [Concomitant]
     Route: 042
  4. FLUOROURACIL [Concomitant]
     Route: 042
  5. AVASTIN [Concomitant]
     Route: 042

REACTIONS (5)
  - GASTROINTESTINAL HAEMORRHAGE [None]
  - INFECTION [None]
  - NEUTROPENIA [None]
  - SEPTIC SHOCK [None]
  - SMALL INTESTINAL OBSTRUCTION [None]
